FAERS Safety Report 6667827-7 (Version None)
Quarter: 2010Q2

REPORT INFORMATION
  Report Type: 
  Country: None (occurrence: None)
  Receive Date: 20100405
  Receipt Date: 20100323
  Transmission Date: 20101027
  Serious: Yes (Other)
  Sender: FDA-Public Use
  Company Number: US-PFIZER INC-2010038052

PATIENT
  Sex: Male
  Weight: 79 kg

DRUGS (8)
  1. CHANTIX [Suspect]
     Indication: SMOKING CESSATION THERAPY
     Dosage: UNK
     Route: 048
     Dates: start: 20060301, end: 20060101
  2. CHANTIX [Suspect]
     Dosage: UNK
     Route: 048
     Dates: start: 20060101, end: 20060601
  3. LAMICTAL CD [Concomitant]
     Indication: EPILEPSY
     Dosage: 200 MG, 2X/DAY
  4. TEGRETOL [Concomitant]
     Indication: EPILEPSY
     Dosage: UNK
  5. XANAX [Concomitant]
     Indication: EPILEPSY
     Dosage: 2 MG, 2X/DAY
  6. VIMPAT [Concomitant]
     Dosage: UNK
  7. ADVIL [Concomitant]
     Dosage: UNK, AS NEEDED
  8. VALIUM [Concomitant]
     Dosage: UNK, AS NEEDED

REACTIONS (2)
  - MEMORY IMPAIRMENT [None]
  - MENTAL IMPAIRMENT [None]
